FAERS Safety Report 8553612-8 (Version None)
Quarter: 2012Q3

REPORT INFORMATION
  Report Type: 
  Country: None (occurrence: None)
  Receive Date: 20120731
  Receipt Date: 20120725
  Transmission Date: 20120928
  Serious: Yes (Hospitalization, Other)
  Sender: FDA-Public Use
  Company Number: US-PFIZER INC-8-97156-004B

PATIENT
  Sex: Female
  Weight: 113 kg

DRUGS (4)
  1. EFFEXOR [Suspect]
     Indication: DEPRESSION
     Dosage: UNK
     Route: 048
     Dates: start: 19950101, end: 19950101
  2. TENORMIN [Concomitant]
     Indication: BLOOD PRESSURE ABNORMAL
     Dosage: UNK
  3. VALIUM [Concomitant]
     Indication: MUSCLE RELAXANT THERAPY
     Dosage: UNK
  4. LODINE [Concomitant]
     Dosage: UNK
     Route: 048
     Dates: start: 19940101, end: 19970513

REACTIONS (7)
  - ERYTHEMA NODOSUM [None]
  - WOUND [None]
  - PULMONARY EMBOLISM [None]
  - BONE PAIN [None]
  - BACK PAIN [None]
  - VENOUS THROMBOSIS LIMB [None]
  - MALAISE [None]
